FAERS Safety Report 22097921 (Version 4)
Quarter: 2023Q2

REPORT INFORMATION
  Report Type: Report from Study
  Country: JP (occurrence: JP)
  Receive Date: 20230315
  Receipt Date: 20230405
  Transmission Date: 20230722
  Serious: Yes (Death, Hospitalization)
  Sender: FDA-Public Use
  Company Number: JP-ARGENX-2022-ARGX-JP001137

PATIENT

DRUGS (18)
  1. VYVGART [Suspect]
     Active Substance: EFGARTIGIMOD ALFA-FCAB
     Indication: Myasthenia gravis
     Dosage: 300 MG, 1/WEEK
     Route: 041
     Dates: start: 20220613
  2. VYVGART [Suspect]
     Active Substance: EFGARTIGIMOD ALFA-FCAB
     Dosage: 260 MG
     Route: 041
     Dates: start: 20221004, end: 20221004
  3. PREDNISOLONE [Concomitant]
     Active Substance: PREDNISOLONE
     Indication: Myasthenia gravis
     Dosage: 20 MG
     Route: 048
     Dates: start: 20220503, end: 20220516
  4. PREDNISOLONE [Concomitant]
     Active Substance: PREDNISOLONE
     Dosage: 15 MG
     Route: 048
     Dates: start: 20220517, end: 20220530
  5. PREDNISOLONE [Concomitant]
     Active Substance: PREDNISOLONE
     Dosage: 12 MG
     Route: 048
     Dates: start: 20220531, end: 20220620
  6. PREDNISOLONE [Concomitant]
     Active Substance: PREDNISOLONE
     Dosage: 10 MG
     Route: 048
     Dates: start: 20220621, end: 20220627
  7. PREDNISOLONE [Concomitant]
     Active Substance: PREDNISOLONE
     Dosage: 8 MG
     Route: 048
     Dates: start: 20220628, end: 20220725
  8. PREDNISOLONE [Concomitant]
     Active Substance: PREDNISOLONE
     Dosage: 7 MG
     Route: 048
     Dates: start: 20220726, end: 20220916
  9. PREDNISOLONE [Concomitant]
     Active Substance: PREDNISOLONE
     Dosage: 5 MG
     Route: 048
     Dates: start: 20220917, end: 20220926
  10. PREDNISOLONE [Concomitant]
     Active Substance: PREDNISOLONE
     Dosage: 8 MG
     Route: 048
     Dates: start: 20220927, end: 20230112
  11. AZATHIOPRINE [Concomitant]
     Active Substance: AZATHIOPRINE
     Indication: Myasthenia gravis
     Dosage: 50 MG
     Route: 065
  12. AZATHIOPRINE [Concomitant]
     Active Substance: AZATHIOPRINE
     Indication: Myasthenia gravis
     Dosage: 50 MG
     Route: 048
     Dates: start: 20220328, end: 20220927
  13. MESTINON [Concomitant]
     Active Substance: PYRIDOSTIGMINE BROMIDE
     Indication: Product used for unknown indication
     Dosage: 250 MG
     Route: 048
     Dates: start: 20220624, end: 20230111
  14. MINOCYCLINE HYDROCHLORIDE [Concomitant]
     Active Substance: MINOCYCLINE HYDROCHLORIDE
     Indication: Product used for unknown indication
     Dosage: 100 MG
     Route: 048
     Dates: start: 20221019, end: 20221028
  15. SULFAMETHOXAZOLE\TRIMETHOPRIM [Concomitant]
     Active Substance: SULFAMETHOXAZOLE\TRIMETHOPRIM
     Indication: Product used for unknown indication
     Dosage: 0.5 DF
     Route: 048
     Dates: start: 20211127, end: 20230111
  16. VONOPRAZAN FUMARATE [Concomitant]
     Active Substance: VONOPRAZAN FUMARATE
     Indication: Product used for unknown indication
     Dosage: 20 MG
     Route: 048
     Dates: start: 20220917, end: 20230111
  17. MOSAPRIDE CITRATE [Concomitant]
     Active Substance: MOSAPRIDE CITRATE
     Indication: Product used for unknown indication
     Dosage: 10 MG
     Route: 048
     Dates: start: 20220702, end: 20230111
  18. ALENDRONATE [Concomitant]
     Active Substance: ALENDRONATE SODIUM
     Indication: Product used for unknown indication
     Dosage: 35 MG
     Route: 048
     Dates: start: 20220415, end: 20230106

REACTIONS (10)
  - Osteomyelitis [Recovering/Resolving]
  - Death [Fatal]
  - General physical health deterioration [Unknown]
  - Bacteraemia [Recovering/Resolving]
  - Vomiting [Unknown]
  - Urinary tract infection [Recovering/Resolving]
  - Bronchitis [Recovering/Resolving]
  - Symptom recurrence [Recovering/Resolving]
  - Therapy interrupted [Not Recovered/Not Resolved]
  - Intentional dose omission [Unknown]

NARRATIVE: CASE EVENT DATE: 20220624
